FAERS Safety Report 6278679-1 (Version None)
Quarter: 2009Q3

REPORT INFORMATION
  Report Type: 
  Country: None (occurrence: None)
  Receive Date: 20090721
  Receipt Date: 20090710
  Transmission Date: 20100115
  Serious: No
  Sender: FDA-Public Use
  Company Number: 8048933

PATIENT
  Age: 8 Year
  Sex: Female
  Weight: 28.5 kg

DRUGS (1)
  1. KEPPRA [Suspect]
     Indication: CONVULSION
     Dosage: 900 MG 2/D PO
     Route: 048
     Dates: start: 20080101

REACTIONS (1)
  - INCORRECT STORAGE OF DRUG [None]
